FAERS Safety Report 4701210-6 (Version None)
Quarter: 2005Q2

REPORT INFORMATION
  Report Type: 
  Country: None (occurrence: None)
  Receive Date: 20050624
  Receipt Date: 20050614
  Transmission Date: 20051028
  Serious: Yes (Hospitalization, Other)
  Sender: FDA-Public Use
  Company Number: 2005089211

PATIENT
  Age: 9 Year
  Sex: Male
  Weight: 33.1126 kg

DRUGS (4)
  1. GEODON [Suspect]
     Indication: BIPOLAR DISORDER
     Dosage: 120 MG (1 D), ORAL
     Route: 048
     Dates: start: 20040121, end: 20050406
  2. STRATTERA [Suspect]
     Indication: ILL-DEFINED DISORDER
     Dosage: ORAL
     Route: 048
     Dates: end: 20050406
  3. CONCERTA [Suspect]
     Indication: ILL-DEFINED DISORDER
     Dosage: ORAL
     Route: 048
     Dates: end: 20050406
  4. DEPAKOTE [Concomitant]
     Indication: ILL-DEFINED DISORDER
     Dosage: ORAL
     Route: 048
     Dates: end: 20050406

REACTIONS (6)
  - CONVULSION [None]
  - DROOLING [None]
  - DYSTONIA [None]
  - JAW DISORDER [None]
  - ORAL INTAKE REDUCED [None]
  - SYDENHAM'S CHOREA [None]
